FAERS Safety Report 6678754-3 (Version None)
Quarter: 2010Q2

REPORT INFORMATION
  Report Type: 
  Country: None (occurrence: None)
  Receive Date: 20100412
  Receipt Date: 20100412
  Transmission Date: 20101027
  Serious: No
  Sender: FDA-Public Use
  Company Number: None

PATIENT
  Age: 50 Year
  Sex: Male
  Weight: 64.8644 kg

DRUGS (1)
  1. ZOLPIDEM [Suspect]
     Indication: INSOMNIA
     Dosage: 10 MG TABLET/EVENING ONE TAB./EVENING PO
     Route: 048
     Dates: start: 20100319, end: 20100410

REACTIONS (6)
  - ABDOMINAL DISCOMFORT [None]
  - AMNESIA [None]
  - MALAISE [None]
  - NAUSEA [None]
  - PRODUCT CONTAMINATION [None]
  - SOMNAMBULISM [None]
